FAERS Safety Report 4456076-9 (Version None)
Quarter: 2004Q3

REPORT INFORMATION
  Report Type: 
  Country: None (occurrence: None)
  Receive Date: 20040920
  Receipt Date: 20040913
  Transmission Date: 20050211
  Serious: Yes (Death, Hospitalization)
  Sender: FDA-Public Use
  Company Number: US-JNJFOC-20040903468

PATIENT
  Age: 39 Year
  Sex: Female

DRUGS (1)
  1. EXTRA STRENGTH TYLENOL [Suspect]
     Indication: INTENTIONAL MISUSE
     Dosage: 1500 MG, 1 IN 3 HOUR, ORAL
     Route: 048

REACTIONS (9)
  - ABDOMINAL PAIN [None]
  - CARDIAC ARREST [None]
  - COAGULOPATHY [None]
  - HEPATIC FAILURE [None]
  - HYPOTENSION [None]
  - LOWER GASTROINTESTINAL HAEMORRHAGE [None]
  - METABOLIC ACIDOSIS [None]
  - NAUSEA [None]
  - SHOCK [None]
